FAERS Safety Report 5982917-X (Version None)
Quarter: 2008Q4

REPORT INFORMATION
  Report Type: 
  Country: None (occurrence: None)
  Receive Date: 20081205
  Receipt Date: 20081205
  Transmission Date: 20090506
  Serious: Yes (Life-Threatening, Hospitalization)
  Sender: FDA-Public Use
  Company Number: None

PATIENT
  Age: 9 Year
  Sex: Male
  Weight: 19.1 kg

DRUGS (4)
  1. LAMOTRIGINE [Suspect]
     Dosage: 50 MG QDAY PO
     Route: 048
     Dates: start: 20081022, end: 20081026
  2. CEFDINIR [Suspect]
     Indication: DIARRHOEA
     Dosage: 125 MG QDAY PO
     Route: 048
     Dates: start: 20081006, end: 20081016
  3. VYVANSE [Concomitant]
  4. SEROQUEL [Concomitant]

REACTIONS (2)
  - ERYTHEMA MULTIFORME [None]
  - STEVENS-JOHNSON SYNDROME [None]
